FAERS Safety Report 7798716-2 (Version None)
Quarter: 2011Q4

REPORT INFORMATION
  Report Type: 
  Country: None (occurrence: None)
  Receive Date: 20111006
  Receipt Date: 20110926
  Transmission Date: 20120403
  Serious: No
  Sender: FDA-Public Use
  Company Number: US-BIOGENIDEC-2011BI036829

PATIENT
  Age: 47 Year
  Sex: Female

DRUGS (2)
  1. AVONEX [Suspect]
     Indication: MULTIPLE SCLEROSIS
     Route: 030
     Dates: start: 19980901
  2. AVONEX [Suspect]
     Route: 030
     Dates: start: 19981101

REACTIONS (4)
  - GASTROINTESTINAL DISORDER [None]
  - BLADDER DISORDER [None]
  - NEUROPATHY PERIPHERAL [None]
  - MULTIPLE SCLEROSIS RELAPSE [None]
